FAERS Safety Report 10437003 (Version 1)
Quarter: 2014Q3

REPORT INFORMATION
  Report Type: Spontaneous
  Country: US (occurrence: None)
  Receive Date: 20140905
  Receipt Date: 20140905
  Transmission Date: 20150326
  Serious: Yes (Hospitalization)
  Sender: FDA-Public Use
  Company Number: None

PATIENT
  Age: 47 Year
  Sex: Male
  Weight: 95.7 kg

DRUGS (14)
  1. EPOGEN [Concomitant]
     Active Substance: ERYTHROPOIETIN
  2. NORAFLOXACIN [Concomitant]
  3. CIPROFLOXACIN. [Concomitant]
     Active Substance: CIPROFLOXACIN
  4. NEXIUM [Concomitant]
     Active Substance: ESOMEPRAZOLE MAGNESIUM
  5. LASIX [Concomitant]
     Active Substance: FUROSEMIDE
  6. JANUVIA [Concomitant]
     Active Substance: SITAGLIPTIN PHOSPHATE
  7. ALDACTONE [Concomitant]
     Active Substance: SPIRONOLACTONE
  8. CALCIUM CARBONATE. [Concomitant]
     Active Substance: CALCIUM CARBONATE
  9. LACTULOSE. [Concomitant]
     Active Substance: LACTULOSE
  10. RIBAVIRIN 200MG [Suspect]
     Active Substance: RIBAVIRIN
     Indication: HEPATITIS C
     Route: 048
     Dates: start: 20140128, end: 20140723
  11. SOFOSBUVIR [Suspect]
     Active Substance: SOFOSBUVIR
     Indication: HEPATITIS C
     Route: 048
     Dates: start: 20140128, end: 20140723
  12. RIFAXIMIN [Concomitant]
     Active Substance: RIFAXIMIN
  13. SYNTHROID [Concomitant]
     Active Substance: LEVOTHYROXINE SODIUM
  14. PRANDIN [Concomitant]
     Active Substance: REPAGLINIDE

REACTIONS (2)
  - Hepatic encephalopathy [None]
  - Fall [None]

NARRATIVE: CASE EVENT DATE: 20140718
